FAERS Safety Report 4754115-9 (Version None)
Quarter: 2005Q3

REPORT INFORMATION
  Report Type: 
  Country: None (occurrence: None)
  Receive Date: 20050816
  Receipt Date: 20040825
  Transmission Date: 20060218
  Serious: Yes (Life-Threatening)
  Sender: FDA-Public Use
  Company Number: 04H-163-0271817-00

PATIENT
  Sex: Female

DRUGS (1)
  1. LIDOCAINE HCL INJ [Suspect]
     Dosage: PALATAL INJECTION
     Dates: start: 20040824, end: 20040824

REACTIONS (3)
  - CONVULSION [None]
  - RESPIRATORY ARREST [None]
  - TREMOR [None]
